FAERS Safety Report 9782772 (Version 1)
Quarter: 2013Q4

REPORT INFORMATION
  Report Type: Spontaneous
  Country: US (occurrence: None)
  Receive Date: 20131224
  Receipt Date: 20131224
  Transmission Date: 20140711
  Serious: No
  Sender: FDA-Public Use
  Company Number: None

PATIENT
  Age: 52 Year
  Sex: Female
  Weight: 88.45 kg

DRUGS (1)
  1. MIRVASO 0.33% GALDERMA [Suspect]
     Indication: ROSACEA
     Route: 062
     Dates: start: 20131218, end: 20131220

REACTIONS (5)
  - Rebound effect [None]
  - Flushing [None]
  - Burning sensation [None]
  - Erythema [None]
  - Condition aggravated [None]
